FAERS Safety Report 20697053 (Version 11)
Quarter: 2024Q3

REPORT INFORMATION
  Report Type: Spontaneous
  Country: US (occurrence: US)
  Receive Date: 20220411
  Receipt Date: 20240822
  Transmission Date: 20241017
  Serious: Yes (Hospitalization, Other)
  Sender: PFIZER
  Company Number: US-PFIZER INC-202200500657

PATIENT
  Age: 61 Year
  Sex: Female
  Weight: 129.27 kg

DRUGS (6)
  1. XELJANZ XR [Suspect]
     Active Substance: TOFACITINIB CITRATE
     Indication: Rheumatoid arthritis
     Dosage: 11 MG, 1X/DAY
  2. XELJANZ XR [Suspect]
     Active Substance: TOFACITINIB CITRATE
     Dosage: 11 MG, 1X/DAY
  3. OXYCODONE [Suspect]
     Active Substance: OXYCODONE
     Dosage: UNK
  4. IBUPROFEN [Concomitant]
     Active Substance: IBUPROFEN
     Indication: Pain
     Dosage: FOUR TABLETS EVERY 4-6 HOURS
  5. IBUPROFEN [Concomitant]
     Active Substance: IBUPROFEN
     Dosage: 4 PILLS EVERY 4 HOURS
  6. FOLIC ACID [Concomitant]
     Active Substance: FOLIC ACID
     Dosage: 1 MG, 1X/DAY
     Route: 048

REACTIONS (14)
  - Pericardial effusion [Unknown]
  - Pleural effusion [Unknown]
  - Hip arthroplasty [Unknown]
  - Hip surgery [Not Recovered/Not Resolved]
  - Stomatitis [Not Recovered/Not Resolved]
  - Throat lesion [Unknown]
  - Skin lesion [Unknown]
  - Nasopharyngitis [Unknown]
  - Oropharyngeal pain [Unknown]
  - Cough [Unknown]
  - Nasal congestion [Unknown]
  - Tongue disorder [Unknown]
  - Muscle spasms [Unknown]
  - Blood cholesterol increased [Unknown]

NARRATIVE: CASE EVENT DATE: 20211001
